FAERS Safety Report 12235403 (Version 1)
Quarter: 2016Q2

REPORT INFORMATION
  Report Type: Spontaneous
  Country: US (occurrence: US)
  Receive Date: 20160404
  Receipt Date: 20160404
  Transmission Date: 20160815
  Serious: No
  Sender: FDA-Public Use
  Company Number: US-MEDA-2016030122

PATIENT
  Age: 62 Year
  Sex: Female
  Weight: 46 kg

DRUGS (2)
  1. MUSE [Suspect]
     Active Substance: ALPROSTADIL
  2. PAXIL [Concomitant]
     Active Substance: PAROXETINE HYDROCHLORIDE
     Indication: ANXIETY
     Route: 048

REACTIONS (2)
  - Vulvovaginal burning sensation [Recovered/Resolved]
  - Exposure via partner [Unknown]

NARRATIVE: CASE EVENT DATE: 20160327
